FAERS Safety Report 6315931-5 (Version None)
Quarter: 2009Q3

REPORT INFORMATION
  Report Type: 
  Country: None (occurrence: None)
  Receive Date: 20090820
  Receipt Date: 20090402
  Transmission Date: 20100115
  Serious: No
  Sender: FDA-Public Use
  Company Number: US-KINGPHARMUSA00001-K200900385

PATIENT
  Sex: Female
  Weight: 49.887 kg

DRUGS (2)
  1. CYTOMEL [Suspect]
     Indication: TRI-IODOTHYRONINE DECREASED
     Dosage: 25 MCG, QD
     Route: 048
     Dates: start: 20090201, end: 20090101
  2. CYTOMEL [Suspect]
     Dosage: 5 MCG, QD
     Route: 048
     Dates: start: 20090101, end: 20090324

REACTIONS (7)
  - ALOPECIA [None]
  - BLOOD THYROID STIMULATING HORMONE DECREASED [None]
  - DIZZINESS [None]
  - FATIGUE [None]
  - INFLUENZA [None]
  - THYROXINE DECREASED [None]
  - TRI-IODOTHYRONINE INCREASED [None]
